FAERS Safety Report 5227946-9 (Version None)
Quarter: 2007Q1

REPORT INFORMATION
  Report Type: 
  Country: None (occurrence: None)
  Receive Date: 20061201
  Receipt Date: 20060519
  Transmission Date: 20070707
  Serious: Yes (Hospitalization)
  Sender: FDA-Public Use
  Company Number: 2006-142907-NL

PATIENT
  Age: 33 Year
  Weight: 59 kg

DRUGS (1)
  1. NUVARING [Suspect]
     Indication: CONTRACEPTION
     Dosage: VAGINAL, 21 DAYS IN, 7 DAYS OUT
     Dates: start: 20050101, end: 20050401

REACTIONS (1)
  - UNINTENDED PREGNANCY [None]
